FAERS Safety Report 5481801-8 (Version None)
Quarter: 2007Q4

REPORT INFORMATION
  Report Type: 
  Country: None (occurrence: None)
  Receive Date: 20071010
  Receipt Date: 20071002
  Transmission Date: 20080405
  Serious: Yes (Other)
  Sender: FDA-Public Use
  Company Number: DE-ROXANE LABORATORIES, INC-2007-BP-22293RO

PATIENT
  Age: 60 Year
  Sex: Female

DRUGS (7)
  1. METHOTREXATE [Suspect]
     Indication: PSORIASIS
     Dates: start: 20051001
  2. FUMARIC ACID [Suspect]
     Indication: PSORIASIS
  3. EFALIZUMAB [Suspect]
     Indication: PSORIASIS
     Route: 058
     Dates: start: 20060301
  4. ACITRETIN [Concomitant]
     Indication: PITYRIASIS RUBRA PILARIS
     Route: 048
  5. PREDNISONE [Concomitant]
     Indication: PITYRIASIS RUBRA PILARIS
     Route: 048
  6. PREDNICARBATE [Concomitant]
     Indication: PITYRIASIS RUBRA PILARIS
     Route: 061
  7. CALCIPOTRIENE [Concomitant]
     Indication: PITYRIASIS RUBRA PILARIS
     Route: 061

REACTIONS (3)
  - DRUG INEFFECTIVE [None]
  - HEPATIC ENZYME INCREASED [None]
  - PITYRIASIS RUBRA PILARIS [None]
